FAERS Safety Report 23479784 (Version 1)
Quarter: 2024Q1

REPORT INFORMATION
  Report Type: Spontaneous
  Country: CN (occurrence: CN)
  Receive Date: 20240205
  Receipt Date: 20240205
  Transmission Date: 20240410
  Serious: Yes (Other)
  Sender: FDA-Public Use
  Company Number: CN-SHANGHAI JUNSHI BIOSCIENCES CO., LTD.-CN2024009221

PATIENT

DRUGS (4)
  1. TORIPALIMAB [Suspect]
     Active Substance: TORIPALIMAB
     Indication: Hepatic cancer metastatic
     Dosage: 160 MG
     Route: 041
     Dates: start: 20240104, end: 20240104
  2. NETUPITANT\PALONOSETRON HYDROCHLORIDE [Suspect]
     Active Substance: NETUPITANT\PALONOSETRON HYDROCHLORIDE
     Indication: Gastrointestinal disorder
     Dosage: 0.3 G
     Route: 048
     Dates: start: 20240104, end: 20240104
  3. GEMCITABINE HYDROCHLORIDE [Suspect]
     Active Substance: GEMCITABINE HYDROCHLORIDE
     Indication: Hepatic cancer metastatic
     Dosage: 1.4 G
     Route: 041
     Dates: start: 20240104, end: 20240104
  4. CISPLATIN [Concomitant]
     Active Substance: CISPLATIN
     Indication: Hepatic cancer metastatic
     Dosage: 100 MG, QD
     Route: 041

REACTIONS (2)
  - Renal impairment [Recovering/Resolving]
  - Off label use [Unknown]

NARRATIVE: CASE EVENT DATE: 20240104
